FAERS Safety Report 7751871-2 (Version None)
Quarter: 2011Q3

REPORT INFORMATION
  Report Type: 
  Country: None (occurrence: None)
  Receive Date: 20110915
  Receipt Date: 20110910
  Transmission Date: 20111222
  Serious: No
  Sender: FDA-Public Use
  Company Number: US-TEVA-300508USA

PATIENT
  Sex: Female
  Weight: 66.738 kg

DRUGS (3)
  1. TRAZODONE HCL [Concomitant]
     Indication: INSOMNIA
     Dosage: 25 MILLIGRAM;
     Route: 048
     Dates: start: 20110801
  2. PROZAC [Concomitant]
     Indication: DEPRESSION
     Dosage: 30 MILLIGRAM;
     Route: 048
     Dates: start: 20100901
  3. PLAN B ONE-STEP [Suspect]
     Indication: POST COITAL CONTRACEPTION
     Dosage: 1.5 MILLIGRAM;
     Route: 048
     Dates: start: 20110906, end: 20110906

REACTIONS (5)
  - ASTHENIA [None]
  - DIZZINESS [None]
  - ARTHRALGIA [None]
  - PELVIC PAIN [None]
  - FATIGUE [None]
